FAERS Safety Report 6977242-4 (Version None)
Quarter: 2010Q3

REPORT INFORMATION
  Report Type: 
  Country: None (occurrence: None)
  Receive Date: 20100910
  Receipt Date: 20100903
  Transmission Date: 20110219
  Serious: Yes (Other)
  Sender: FDA-Public Use
  Company Number: GB-BAXTER-2010BH022992

PATIENT
  Age: 13 Month

DRUGS (4)
  1. CYCLOPHOSPHAMIDE [Suspect]
     Indication: CHOROID PLEXUS CARCINOMA
     Route: 065
  2. ETOPOSIDE [Suspect]
     Indication: CHOROID PLEXUS CARCINOMA
     Route: 065
  3. VINCRISTINE SULFATE [Suspect]
     Indication: CHOROID PLEXUS CARCINOMA
     Route: 065
  4. DEXAMETHASONE [Concomitant]
     Indication: PRODUCT USED FOR UNKNOWN INDICATION
     Route: 065

REACTIONS (1)
  - PNEUMOCOCCAL INFECTION [None]
